FAERS Safety Report 14112224 (Version 1)
Quarter: 2017Q4

REPORT INFORMATION
  Report Type: Spontaneous
  Country: PH (occurrence: PH)
  Receive Date: 20171020
  Receipt Date: 20171020
  Transmission Date: 20180321
  Serious: Yes (Hospitalization)
  Sender: FDA-Public Use
  Company Number: PH-GEHC-2017CSU003192

PATIENT

DRUGS (1)
  1. VISIPAQUE [Suspect]
     Active Substance: IODIXANOL
     Indication: DIZZINESS
     Dosage: 50 ML, SINGLE
     Route: 065

REACTIONS (1)
  - Endotracheal intubation [Unknown]
